FAERS Safety Report 5219421-2 (Version None)
Quarter: 2006Q4

REPORT INFORMATION
  Report Type: 
  Country: None (occurrence: None)
  Receive Date: 20061201
  Receipt Date: 20060719
  Transmission Date: 20070319
  Serious: No
  Sender: FDA-Public Use
  Company Number: 2006PV017822

PATIENT
  Age: 50 Year
  Sex: Male

DRUGS (5)
  1. BYETTA [Suspect]
     Indication: DRUG USE FOR UNKNOWN INDICATION
     Dosage: SC
     Route: 058
     Dates: start: 20060601
  2. METFORMIN HCL [Concomitant]
  3. AVANDIA [Concomitant]
  4. COUMADIN [Concomitant]
  5. ATENOLOL [Concomitant]

REACTIONS (1)
  - ATRIAL FIBRILLATION [None]
